FAERS Safety Report 10229659 (Version 1)
Quarter: 2014Q2

REPORT INFORMATION
  Report Type: Spontaneous
  Country: IT (occurrence: IT)
  Receive Date: 20140611
  Receipt Date: 20140611
  Transmission Date: 20141212
  Serious: Yes (Other)
  Sender: FDA-Public Use
  Company Number: IT-JNJFOC-20140519194

PATIENT
  Age: 44 Year
  Sex: Female

DRUGS (2)
  1. HALDOL [Suspect]
     Indication: PRODUCT USED FOR UNKNOWN INDICATION
     Route: 048
     Dates: start: 20140529
  2. ZYPREXA [Suspect]
     Indication: PRODUCT USED FOR UNKNOWN INDICATION
     Route: 065
     Dates: start: 20140529, end: 20140529

REACTIONS (3)
  - Self injurious behaviour [Unknown]
  - Intentional overdose [Unknown]
  - Sopor [Unknown]
